FAERS Safety Report 7628136-2 (Version None)
Quarter: 2011Q3

REPORT INFORMATION
  Report Type: 
  Country: None (occurrence: None)
  Receive Date: 20110720
  Receipt Date: 20110720
  Transmission Date: 20111222
  Serious: Yes (Hospitalization)
  Sender: FDA-Public Use
  Company Number: None

PATIENT
  Sex: Male
  Weight: 103.5 kg

DRUGS (1)
  1. DASATINIB [Suspect]
     Indication: PROSTATE CANCER METASTATIC
     Dosage: 100MG DAILY PO
     Route: 048
     Dates: start: 20101206, end: 20110717

REACTIONS (6)
  - BUNDLE BRANCH BLOCK LEFT [None]
  - NAUSEA [None]
  - DECREASED APPETITE [None]
  - URINARY RETENTION [None]
  - FATIGUE [None]
  - CARDIAC ENZYMES INCREASED [None]
